FAERS Safety Report 26181626 (Version 1)
Quarter: 2025Q4

REPORT INFORMATION
  Report Type: Spontaneous
  Country: JP (occurrence: JP)
  Receive Date: 20251221
  Receipt Date: 20251221
  Transmission Date: 20260118
  Serious: Yes (Hospitalization, Other)
  Sender: GILEAD
  Company Number: JP-GILEAD-2025-0741438

PATIENT
  Age: 68 Year
  Sex: Female

DRUGS (1)
  1. YESCARTA [Suspect]
     Active Substance: AXICABTAGENE CILOLEUCEL
     Indication: Diffuse large B-cell lymphoma
     Dosage: UNK
     Route: 041
     Dates: start: 202507, end: 202507

REACTIONS (3)
  - Cytopenia [Not Recovered/Not Resolved]
  - Cytomegalovirus enterocolitis [Unknown]
  - Cytokine release syndrome [Recovered/Resolved]
